FAERS Safety Report 6554982-2 (Version None)
Quarter: 2010Q1

REPORT INFORMATION
  Report Type: 
  Country: None (occurrence: None)
  Receive Date: 20100126
  Receipt Date: 20100126
  Transmission Date: 20100710
  Serious: Yes (Hospitalization)
  Sender: FDA-Public Use
  Company Number: None

PATIENT
  Age: 37 Year
  Sex: Female

DRUGS (1)
  1. IBUPROFEN [Suspect]
     Indication: AFTERBIRTH PAIN
     Dosage: 600 MG Q6H PRN PO
     Route: 048
     Dates: start: 20091017, end: 20091017

REACTIONS (3)
  - ANXIETY [None]
  - SWELLING FACE [None]
  - SWOLLEN TONGUE [None]
